FAERS Safety Report 9682780 (Version 2)
Quarter: 2014Q1

REPORT INFORMATION
  Report Type: Report from Study
  Country: GB (occurrence: GB)
  Receive Date: 20131112
  Receipt Date: 20140127
  Transmission Date: 20141002
  Serious: Yes (Other)
  Sender: FDA-Public Use
  Company Number: PHFR2013GB006280

PATIENT
  Sex: Male

DRUGS (1)
  1. ACZ885 [Suspect]
     Route: 064

REACTIONS (3)
  - Cryopyrin associated periodic syndrome [Unknown]
  - Urticaria [Unknown]
  - Foetal exposure during pregnancy [Unknown]
